FAERS Safety Report 9267895 (Version 1)
Quarter: 2013Q2

REPORT INFORMATION
  Report Type: Report from Study
  Country: US (occurrence: US)
  Receive Date: 20130502
  Receipt Date: 20130502
  Transmission Date: 20140414
  Serious: Yes (Hospitalization, Other)
  Sender: FDA-Public Use
  Company Number: US-ALEXION-A201201205

PATIENT
  Age: 37 Year
  Sex: Female

DRUGS (4)
  1. SOLIRIS [Suspect]
     Indication: HAEMOLYTIC URAEMIC SYNDROME
     Dosage: 900 MG, QW
     Route: 042
     Dates: start: 20120425, end: 201205
  2. SOLIRIS [Suspect]
     Dosage: 1200 MG, QW
     Route: 042
     Dates: start: 20120524
  3. PREDNISONE [Suspect]
     Dosage: UNK, TAPERED FROM 16 WEEKS TO 18 WEEKS EGA
     Route: 048
     Dates: start: 2012, end: 2012
  4. PROGESTERONE [Concomitant]
     Indication: PREGNANCY
     Dosage: QW
     Route: 030

REACTIONS (4)
  - Abortion spontaneous [Recovered/Resolved]
  - Retained placenta or membranes [Recovered/Resolved]
  - Exposure during pregnancy [Recovered/Resolved]
  - Sinusitis [Recovered/Resolved]
